FAERS Safety Report 20862745 (Version 1)
Quarter: 2022Q2

REPORT INFORMATION
  Report Type: Spontaneous
  Country: US (occurrence: US)
  Receive Date: 20220523
  Receipt Date: 20220523
  Transmission Date: 20220721
  Serious: Yes (Other)
  Sender: FDA-Public Use
  Company Number: US-AZURITY PHARMACEUTICALS, INC.-US-2022ARB001277

PATIENT
  Age: 53 Year
  Sex: Male

DRUGS (6)
  1. VANCOMYCIN HYDROCHLORIDE [Suspect]
     Active Substance: VANCOMYCIN HYDROCHLORIDE
     Indication: Abdominal infection
     Dosage: 1750 MG (250 ML/HR OVER 2 HRS) DAY 1
     Route: 042
  2. VANCOMYCIN HYDROCHLORIDE [Suspect]
     Active Substance: VANCOMYCIN HYDROCHLORIDE
     Dosage: 1750 MG (250 ML/HR OVER 2 HRS AT 1 A.M) 500 MG (100 ML/HR OVER 1 HR AT 2 P.M) DAY 2
     Route: 042
  3. VANCOMYCIN HYDROCHLORIDE [Suspect]
     Active Substance: VANCOMYCIN HYDROCHLORIDE
     Dosage: 2500 MG (220 ML/HR OVER 2.5 HRS) DAY 3
     Route: 042
  4. DIGOXIN [Suspect]
     Active Substance: DIGOXIN
     Indication: Product used for unknown indication
     Dosage: 250 ?G (ONCE OVER 5 MIN) DAY 1
     Route: 042
  5. DIGOXIN [Suspect]
     Active Substance: DIGOXIN
     Dosage: 62.5 ?G (ONCE OVER 5 MIN) DAY 3
     Route: 042
  6. DIGOXIN [Suspect]
     Active Substance: DIGOXIN
     Dosage: 500 AND 250 ?G (ONCE AT EACH DOSE OVER 5 MIN) DAY 4
     Route: 042

REACTIONS (1)
  - Toxicity to various agents [Unknown]
